FAERS Safety Report 8282166-9 (Version None)
Quarter: 2012Q2

REPORT INFORMATION
  Report Type: 
  Country: None (occurrence: None)
  Receive Date: 20120413
  Receipt Date: 20120411
  Transmission Date: 20120825
  Serious: Yes (Life-Threatening, Hospitalization, Other)
  Sender: FDA-Public Use
  Company Number: PHHY2012AU002270

PATIENT
  Sex: Female
  Weight: 55 kg

DRUGS (3)
  1. CLOZARIL [Suspect]
     Indication: SCHIZOPHRENIA
     Dosage: 300 MG, QD
     Route: 048
     Dates: start: 20111031, end: 20120109
  2. LEVOTHYROXINE SODIUM [Concomitant]
     Dosage: 100 UG, QD
  3. LEVOTHYROXINE SODIUM [Concomitant]
     Dosage: 75 UG, QD
     Dates: start: 20120411

REACTIONS (6)
  - PYREXIA [None]
  - NEUTROPENIA [None]
  - LEUKOPENIA [None]
  - SEPSIS [None]
  - AGRANULOCYTOSIS [None]
  - RENAL FAILURE ACUTE [None]
